FAERS Safety Report 18640483 (Version 1)
Quarter: 2020Q4

REPORT INFORMATION
  Report Type: Spontaneous
  Country: US (occurrence: US)
  Receive Date: 20201221
  Receipt Date: 20201221
  Transmission Date: 20210114
  Serious: Yes (Other)
  Sender: FDA-Public Use
  Company Number: US-LUPIN PHARMACEUTICALS INC.-2020-10314

PATIENT
  Age: 52 Year
  Sex: Female

DRUGS (1)
  1. AZITHROMYCIN TABLETS, 250 MG [Suspect]
     Active Substance: AZITHROMYCIN
     Indication: SINUSITIS BACTERIAL
     Dosage: 2 DOSAGE FORM, QD
     Route: 048
     Dates: start: 20201207, end: 20201207

REACTIONS (10)
  - Chills [Recovered/Resolved]
  - Lethargy [Recovered/Resolved]
  - Tinnitus [Recovered/Resolved]
  - Suspected product contamination [Unknown]
  - Dysarthria [Recovered/Resolved]
  - Dizziness [Recovered/Resolved]
  - Vertigo [Recovered/Resolved]
  - Mental disorder [Recovered/Resolved]
  - Vomiting [Recovered/Resolved]
  - Confusional state [Recovered/Resolved]

NARRATIVE: CASE EVENT DATE: 20201207
